FAERS Safety Report 7940759-X (Version None)
Quarter: 2011Q4

REPORT INFORMATION
  Report Type: 
  Country: None (occurrence: None)
  Receive Date: 20111128
  Receipt Date: 20111121
  Transmission Date: 20120403
  Serious: Yes (Hospitalization, Other)
  Sender: FDA-Public Use
  Company Number: US-PFIZER INC-2011001323

PATIENT
  Sex: Male
  Weight: 68.027 kg

DRUGS (3)
  1. ZOLOFT [Suspect]
     Indication: DEPRESSION
     Dosage: 50 MG, 1X/DAY
     Route: 048
     Dates: start: 20100712
  2. ZOLOFT [Suspect]
     Indication: SLEEP DISORDER
     Dosage: 25 MG, 1X/DAY
     Dates: start: 20100101
  3. AMLODIPINE [Concomitant]
     Indication: HYPERTENSION
     Dosage: UNK

REACTIONS (6)
  - DECREASED INTEREST [None]
  - COMA [None]
  - HYPERSENSITIVITY [None]
  - SUICIDE ATTEMPT [None]
  - MEMORY IMPAIRMENT [None]
  - INSOMNIA [None]
